FAERS Safety Report 6569734-7 (Version None)
Quarter: 2010Q1

REPORT INFORMATION
  Report Type: 
  Country: None (occurrence: None)
  Receive Date: 20100204
  Receipt Date: 20100122
  Transmission Date: 20100710
  Serious: Yes (Other)
  Sender: FDA-Public Use
  Company Number: FR-JNJFOC-20100201448

PATIENT
  Age: 55 Year
  Sex: Male

DRUGS (5)
  1. IXPRIM [Suspect]
     Indication: DRUG USE FOR UNKNOWN INDICATION
     Route: 048
  2. ESPERAL [Suspect]
     Indication: ALCOHOL WITHDRAWAL SYNDROME
     Route: 048
  3. BI-PROFENID [Suspect]
     Indication: DRUG USE FOR UNKNOWN INDICATION
     Route: 065
  4. LAMICTAL [Suspect]
     Indication: DRUG USE FOR UNKNOWN INDICATION
     Dosage: 1 DOSE
     Route: 048
  5. CRESTOR [Suspect]
     Indication: DRUG USE FOR UNKNOWN INDICATION
     Dosage: 1 DOSE
     Route: 048

REACTIONS (1)
  - NEUROPATHY PERIPHERAL [None]
